FAERS Safety Report 5087093-6 (Version None)
Quarter: 2006Q3

REPORT INFORMATION
  Report Type: 
  Country: None (occurrence: None)
  Receive Date: 20060821
  Receipt Date: 20060803
  Transmission Date: 20061208
  Serious: Yes (Other)
  Sender: FDA-Public Use
  Company Number: DSA_28576_2006

PATIENT
  Age: 76 Year
  Sex: Female

DRUGS (5)
  1. ORFIDAL [Suspect]
     Dosage: 1 MG Q DAY PO
     Route: 048
     Dates: start: 20050101
  2. DEPRAX [Suspect]
     Dosage: 100 MG Q DAY PO
     Route: 048
     Dates: start: 20050101
  3. SEROQUEL [Suspect]
     Dosage: 100 MG Q DAY PO
     Route: 048
     Dates: start: 20060401
  4. DISTRANEURINE [Concomitant]
  5. EBIXA [Concomitant]

REACTIONS (2)
  - DRUG INTERACTION [None]
  - DYSKINESIA [None]
